FAERS Safety Report 6544215-5 (Version None)
Quarter: 2010Q1

REPORT INFORMATION
  Report Type: 
  Country: None (occurrence: None)
  Receive Date: 20100119
  Receipt Date: 20100119
  Transmission Date: 20100710
  Serious: Yes (Hospitalization)
  Sender: FDA-Public Use
  Company Number: None

PATIENT
  Sex: Female
  Weight: 91.4 kg

DRUGS (3)
  1. CARBOPLATIN [Suspect]
     Dosage: 930 MG
     Dates: end: 20091216
  2. G-CSF (FILGRASTIM, AMGEN) [Suspect]
     Dosage: 300 MG
     Dates: end: 20091223
  3. PACLITAXEL [Suspect]
     Dosage: 160 MG
     Dates: end: 20091216

REACTIONS (3)
  - NEUTROPHIL COUNT DECREASED [None]
  - PYREXIA [None]
  - THROMBOCYTOPENIA [None]
